FAERS Safety Report 5168413-0 (Version None)
Quarter: 2006Q4

REPORT INFORMATION
  Report Type: 
  Country: None (occurrence: None)
  Receive Date: 20061201
  Receipt Date: 20060727
  Transmission Date: 20070319
  Serious: Yes (Hospitalization)
  Sender: FDA-Public Use
  Company Number: 2006087008

PATIENT
  Age: 33 Year
  Sex: Female
  Weight: 52 kg

DRUGS (5)
  1. SILDENAFIL CITRATE [Suspect]
     Indication: PULMONARY HYPERTENSION
     Dosage: 75 MG (25 MG, 3 IN 1 D), ORAL
     Route: 048
     Dates: start: 20050808
  2. NICARDIPINE HYDROCHLORIDE [Concomitant]
  3. LASIX [Concomitant]
  4. ALDACTONE [Concomitant]
  5. LEUPLIN               (LEUPRORELIN ACETATE) [Concomitant]

REACTIONS (3)
  - FEELING ABNORMAL [None]
  - LOSS OF CONSCIOUSNESS [None]
  - UTERINE HAEMORRHAGE [None]
